FAERS Safety Report 17534915 (Version 1)
Quarter: 2020Q1

REPORT INFORMATION
  Report Type: Spontaneous
  Country: SE (occurrence: SE)
  Receive Date: 20200312
  Receipt Date: 20200312
  Transmission Date: 20200409
  Serious: Yes (Other)
  Sender: FDA-Public Use
  Company Number: SE-VERTEX PHARMACEUTICALS-2020-004579

PATIENT
  Age: 3 Year
  Sex: Male

DRUGS (11)
  1. CREON 10,000 GASTRORESISTANT CAPSULE [Concomitant]
     Dosage: VID BEHOV CA 3-4 KAPSLAR F?RE M?LTIDER CA 20 ST/DAG OBS I CYSTISK FIBROS
  2. ORKAMBI [Suspect]
     Active Substance: IVACAFTOR\LUMACAFTOR
     Indication: CYSTIC FIBROSIS
     Dosage: 150MG LUMACAFTOR/188MG IVACAFTOR
     Route: 048
     Dates: start: 20200109, end: 20200214
  3. MINIDERM 20 % [Concomitant]
  4. FLUTIDE EVOHALER 125 MIKROGRAM/DOS INHALATIONSSPRAY, SUSPENSION [Concomitant]
  5. CLONIDINE APL 20 MICROGRAM/ML ORAL SOLUTION [Concomitant]
     Dosage: 3.5 ML L?SNING VID BEHOV.
  6. EMLA 25 MG/25 MG MEDICAL BAND-AID [Concomitant]
  7. ACETYLCYSEINE MEDA 200 MG/ML NEBULIZER SOLUTION [Concomitant]
  8. BISOLVON 1.6 MG/ML ORAL SOLUTION [Concomitant]
  9. AIROMIR 0.1 MG/DOSE INHALATION SPRAY, SUSPENSION [Concomitant]
  10. PROPYLENE GLYCOL IN LOCOBASE CREAM APL 20% CREAM [Concomitant]
  11. LOCOID 0.1% CREAM [Concomitant]

REACTIONS (3)
  - Alanine aminotransferase increased [Unknown]
  - Aspartate aminotransferase increased [Unknown]
  - Gamma-glutamyltransferase increased [Unknown]

NARRATIVE: CASE EVENT DATE: 20200213
